FAERS Safety Report 9506436 (Version 1)
Quarter: 2013Q1

REPORT INFORMATION
  Report Type: Spontaneous
  Country: US (occurrence: None)
  Receive Date: 20130301
  Receipt Date: 20130301
  Transmission Date: 20140127
  Serious: No
  Sender: FDA-Public Use
  Company Number: US-JNJFOC-20120210093

PATIENT
  Age: 4 Year
  Sex: Male

DRUGS (7)
  1. CHILDRENS MOTRIN [Suspect]
     Indication: PYREXIA
     Route: 048
  2. FLONASE [Concomitant]
  3. UNKNOWN MEDICATION (ALL OTHER THERAPEUTIC PRODUCTS) [Concomitant]
  4. ZYRTEC [Concomitant]
  5. ALBUTEROL (SALBUTAMOL) [Concomitant]
  6. SINGULAIR [Concomitant]
  7. MULTIVITAMINS [Concomitant]

REACTIONS (1)
  - Wrong technique in drug usage process [None]
